FAERS Safety Report 9917960 (Version 1)
Quarter: 2014Q1

REPORT INFORMATION
  Report Type: Report from Study
  Country: US (occurrence: US)
  Receive Date: 20140222
  Receipt Date: 20140222
  Transmission Date: 20141002
  Serious: Yes (Other)
  Sender: FDA-Public Use
  Company Number: US-ROCHE-1292863

PATIENT
  Sex: Male

DRUGS (4)
  1. AVASTIN [Suspect]
     Indication: AGE-RELATED MACULAR DEGENERATION
     Route: 050
  2. ANTARA [Concomitant]
     Indication: BLOOD TRIGLYCERIDES INCREASED
  3. ENALAPRIL [Concomitant]
     Indication: HYPERTENSION
  4. ASPIRIN [Concomitant]
     Indication: PROPHYLAXIS
     Route: 065

REACTIONS (4)
  - Macular oedema [Unknown]
  - Drug ineffective [Unknown]
  - Off label use [Unknown]
  - General physical health deterioration [Unknown]
